FAERS Safety Report 5820024-7 (Version None)
Quarter: 2008Q3

REPORT INFORMATION
  Report Type: 
  Country: None (occurrence: None)
  Receive Date: 20080718
  Receipt Date: 20080718
  Transmission Date: 20090109
  Serious: Yes (Other)
  Sender: FDA-Public Use
  Company Number: None

PATIENT
  Age: 51 Year
  Sex: Female
  Weight: 124.7392 kg

DRUGS (1)
  1. ETODOLAC XK 500MG TARO [Suspect]
     Indication: OSTEOARTHRITIS
     Dosage: 500MG BID PO
     Route: 048
     Dates: start: 20080501, end: 20080704

REACTIONS (4)
  - ANXIETY [None]
  - CONTUSION [None]
  - MOOD SWINGS [None]
  - VISUAL IMPAIRMENT [None]
